FAERS Safety Report 9901192 (Version 2)
Quarter: 2014Q1

REPORT INFORMATION
  Report Type: Report from Study
  Country: IT (occurrence: IT)
  Receive Date: 20140217
  Receipt Date: 20140314
  Transmission Date: 20141002
  Serious: Yes (Death, Life-Threatening)
  Sender: FDA-Public Use
  Company Number: IT-ASTELLAS-2014EU001093

PATIENT
  Age: 78 Year
  Sex: Male

DRUGS (1)
  1. ENZALUTAMIDE [Suspect]
     Indication: PROSTATE CANCER
     Dosage: 160 MG, UID/QD
     Route: 048
     Dates: start: 20121106

REACTIONS (4)
  - Malignant neoplasm progression [Fatal]
  - Renal failure [Fatal]
  - Septic shock [Fatal]
  - Hospitalisation [Fatal]
